FAERS Safety Report 11560759 (Version 1)
Quarter: 2015Q3

REPORT INFORMATION
  Report Type: Spontaneous
  Country: FR (occurrence: FR)
  Receive Date: 20150928
  Receipt Date: 20150928
  Transmission Date: 20151125
  Serious: Yes (Hospitalization)
  Sender: FDA-Public Use
  Company Number: FR-SA-2015SA145397

PATIENT
  Age: 67 Year
  Sex: Male

DRUGS (11)
  1. LASILIX  SPECIAL [Concomitant]
     Active Substance: FUROSEMIDE
     Route: 048
     Dates: start: 2013, end: 20150731
  2. INSPRA [Concomitant]
     Active Substance: EPLERENONE
     Route: 048
     Dates: start: 2013
  3. ALLOPURINOL. [Concomitant]
     Active Substance: ALLOPURINOL
     Dates: start: 2013
  4. PREVISCAN [Concomitant]
     Active Substance: FLUINDIONE
     Dosage: STRENGTH: 20 MG?(0.5 TABLET 1 DAY ON 2 ALTERNATING WITH 0.25 TABLET)
     Route: 048
  5. KALEORID [Concomitant]
     Active Substance: POTASSIUM CHLORIDE
     Dosage: STRENGTH: 600 MG
     Route: 048
     Dates: start: 2013
  6. OXYCONTIN [Concomitant]
     Active Substance: OXYCODONE HYDROCHLORIDE
     Dosage: STRENGTH: 20 MG
     Route: 048
     Dates: start: 2013
  7. TRIATEC [Concomitant]
     Active Substance: RAMIPRIL
     Route: 048
     Dates: start: 2013
  8. LANTUS [Concomitant]
     Active Substance: INSULIN GLARGINE
     Dates: start: 2013
  9. LASILIX [Suspect]
     Active Substance: FUROSEMIDE
     Dosage: DIVIDABLE TABLET
     Route: 048
     Dates: start: 20150813
  10. LASILIX [Suspect]
     Active Substance: FUROSEMIDE
     Dosage: DIVIDABLE TABLET
     Route: 048
     Dates: start: 20150731, end: 20150811
  11. BISOPROLOL FUMARATE. [Concomitant]
     Active Substance: BISOPROLOL FUMARATE
     Dosage: 1.25 MG, 1 IN 1 DAY
     Route: 048
     Dates: start: 2013

REACTIONS (3)
  - Confusional state [Recovered/Resolved]
  - Renal failure [Recovered/Resolved]
  - Hyponatraemia [Recovered/Resolved]

NARRATIVE: CASE EVENT DATE: 20150811
